FAERS Safety Report 8532992-3 (Version None)
Quarter: 2012Q3

REPORT INFORMATION
  Report Type: 
  Country: None (occurrence: None)
  Receive Date: 20120724
  Receipt Date: 20120713
  Transmission Date: 20120928
  Serious: Yes (Hospitalization)
  Sender: FDA-Public Use
  Company Number: JP-NOVOPROD-355464

PATIENT
  Age: 80 Year
  Sex: Female
  Weight: 35 kg

DRUGS (14)
  1. KETOPROFEN [Concomitant]
     Dosage: /TO
  2. WARFARIN SODIUM [Concomitant]
     Dosage: 2 MG, QD
     Route: 048
  3. ALDACTONE [Concomitant]
     Dosage: 25 MG, QD
     Route: 048
  4. ZOLPIDEM [Concomitant]
     Dosage: 10 MG, QD
     Route: 048
  5. ALOSENN                            /00476901/ [Concomitant]
     Dosage: 1 G, QD
     Route: 048
  6. VASOLAN                            /00014302/ [Concomitant]
     Dosage: 80 MG, QD
     Route: 048
  7. SUNRYTHM [Concomitant]
     Dosage: 3 CAPS, QD
     Route: 048
  8. CARVEDILOL [Concomitant]
     Dosage: 5 MG, QD
     Route: 048
  9. VICTOZA [Suspect]
     Dosage: 0.3 MG, QD
     Route: 058
  10. MICARDIS [Concomitant]
     Dosage: 40 MG, QD
     Route: 048
  11. ALLOPURINOL [Concomitant]
     Dosage: 100 MG, QD
     Route: 048
  12. VICTOZA [Suspect]
     Indication: TYPE 2 DIABETES MELLITUS
     Dosage: 0.3 MG, QD
     Route: 058
     Dates: start: 20120228
  13. DIART [Concomitant]
     Dosage: 60 MG, QD
     Route: 048
     Dates: start: 20110406
  14. VICTOZA [Suspect]
     Dosage: 0.6 MG, QD
     Route: 058
     Dates: start: 20120305

REACTIONS (2)
  - LOWER GASTROINTESTINAL HAEMORRHAGE [None]
  - INTESTINAL OBSTRUCTION [None]
